FAERS Safety Report 10136155 (Version 1)
Quarter: 2014Q2

REPORT INFORMATION
  Report Type: Spontaneous
  Country: US (occurrence: US)
  Receive Date: 20140429
  Receipt Date: 20140429
  Transmission Date: 20141212
  Serious: No
  Sender: FDA-Public Use
  Company Number: US-B.I. PHARMACEUTICALS,INC./RIDGEFIELD-2014-BI-17938BP

PATIENT
  Age: 74 Year
  Sex: Male
  Weight: 80 kg

DRUGS (6)
  1. SPIRIVA [Suspect]
     Indication: CHRONIC OBSTRUCTIVE PULMONARY DISEASE
     Dosage: 18 MCG
     Route: 055
     Dates: start: 201403
  2. COREG [Concomitant]
     Indication: HYPERTENSION
     Route: 048
  3. HYDRALAZINE [Concomitant]
     Indication: HYPERTENSION
     Route: 048
  4. NORVASC [Concomitant]
     Indication: HYPERTENSION
     Route: 048
  5. ZANAPRIN [Concomitant]
     Indication: HYPERTENSION
     Route: 048
  6. UNSPECIFIED [Concomitant]
     Indication: HYPERTENSION
     Route: 048

REACTIONS (1)
  - Drug ineffective [Not Recovered/Not Resolved]
